FAERS Safety Report 10433207 (Version 3)
Quarter: 2015Q3

REPORT INFORMATION
  Report Type: Report from Study
  Country: US (occurrence: US)
  Receive Date: 20140905
  Receipt Date: 20150804
  Transmission Date: 20151125
  Serious: Yes (Death, Other)
  Sender: FDA-Public Use
  Company Number: US-ASTELLAS-2014US011690

PATIENT
  Age: 66 Year
  Sex: Male

DRUGS (5)
  1. ERLOTINIB [Suspect]
     Active Substance: ERLOTINIB
     Indication: MALIGNANT URINARY TRACT NEOPLASM
     Route: 048
     Dates: start: 20050526
  2. ERLOTINIB [Suspect]
     Active Substance: ERLOTINIB
     Indication: METASTATIC RENAL CELL CARCINOMA
  3. AVASTIN [Suspect]
     Active Substance: BEVACIZUMAB
     Indication: MALIGNANT URINARY TRACT NEOPLASM
     Dosage: 500 MG, ONCE IN EVERY 2 WEEKS
     Route: 042
     Dates: start: 20050526
  4. AVASTIN [Suspect]
     Active Substance: BEVACIZUMAB
     Indication: METASTATIC RENAL CELL CARCINOMA
  5. ZOMETA [Concomitant]
     Active Substance: ZOLEDRONIC ACID
     Indication: PRODUCT USED FOR UNKNOWN INDICATION
     Dosage: UNK UNK, UNKNOWN FREQ.
     Route: 065
     Dates: start: 200501

REACTIONS (4)
  - Metastases to bone [Unknown]
  - General physical health deterioration [Unknown]
  - Off label use [Unknown]
  - Ulcer [Fatal]

NARRATIVE: CASE EVENT DATE: 200507
